FAERS Safety Report 4428197-8 (Version None)
Quarter: 2004Q3

REPORT INFORMATION
  Report Type: 
  Country: None (occurrence: None)
  Receive Date: 20040726
  Receipt Date: 20040317
  Transmission Date: 20050211
  Serious: No
  Sender: FDA-Public Use
  Company Number: USA040362259

PATIENT
  Age: 75 Year
  Sex: Female
  Weight: 62 kg

DRUGS (4)
  1. FORTEO [Suspect]
     Indication: OSTEOPOROSIS
     Dosage: 20 UG/1 DAY
     Dates: start: 20040305
  2. BISOPROLOL FUMARATE [Concomitant]
  3. VIOXX [Suspect]
  4. SKELAXIN [Concomitant]

REACTIONS (2)
  - HEADACHE [None]
  - MUSCLE CRAMP [None]
